FAERS Safety Report 5068989-8 (Version None)
Quarter: 2006Q3

REPORT INFORMATION
  Report Type: 
  Country: None (occurrence: None)
  Receive Date: 20060802
  Receipt Date: 20060726
  Transmission Date: 20061208
  Serious: Yes (Life-Threatening, Hospitalization)
  Sender: FDA-Public Use
  Company Number: JP-BOEHRINGER INGELHEIM PHARMACEUTICALS, INC.-2006-BP-08630NB

PATIENT
  Sex: Male
  Weight: 45 kg

DRUGS (5)
  1. MOBIC [Suspect]
     Indication: BACK PAIN
     Route: 048
     Dates: start: 20060624, end: 20060627
  2. CALBLOCK [Concomitant]
     Indication: HYPERTENSION
     Route: 048
     Dates: end: 20060628
  3. BLOPRESS [Concomitant]
     Indication: HYPERTENSION
     Route: 048
     Dates: end: 20060628
  4. SELBEX [Concomitant]
     Indication: REFLUX OESOPHAGITIS
     Route: 048
     Dates: end: 20060628
  5. TAKEPRON [Concomitant]
     Indication: REFLUX OESOPHAGITIS
     Route: 048
     Dates: end: 20060628

REACTIONS (3)
  - HEPATITIS FULMINANT [None]
  - RENAL FAILURE [None]
  - SICK SINUS SYNDROME [None]
